FAERS Safety Report 5869837-6 (Version None)
Quarter: 2008Q3

REPORT INFORMATION
  Report Type: 
  Country: None (occurrence: None)
  Receive Date: 20080904
  Receipt Date: 20080826
  Transmission Date: 20090109
  Serious: Yes (Hospitalization, Other)
  Sender: FDA-Public Use
  Company Number: US-PFIZER INC-2008071671

PATIENT
  Sex: Female
  Weight: 72.727 kg

DRUGS (4)
  1. LIPITOR [Suspect]
     Indication: BLOOD CHOLESTEROL INCREASED
     Dates: start: 20070101, end: 20070301
  2. ZETIA [Concomitant]
  3. PLAVIX [Concomitant]
  4. LISINOPRIL [Concomitant]

REACTIONS (8)
  - DEMENTIA ALZHEIMER'S TYPE [None]
  - FEELING ABNORMAL [None]
  - HEADACHE [None]
  - ILL-DEFINED DISORDER [None]
  - MEMORY IMPAIRMENT [None]
  - MIDDLE INSOMNIA [None]
  - SPEECH DISORDER [None]
  - THINKING ABNORMAL [None]
